FAERS Safety Report 7490614-7 (Version None)
Quarter: 2011Q2

REPORT INFORMATION
  Report Type: 
  Country: None (occurrence: None)
  Receive Date: 20110519
  Receipt Date: 20110516
  Transmission Date: 20111010
  Serious: Yes (Other)
  Sender: FDA-Public Use
  Company Number: US-AMGEN-USASP2011018291

PATIENT
  Age: 17 Year
  Sex: Female
  Weight: 83.5 kg

DRUGS (1)
  1. NPLATE [Suspect]
     Indication: IDIOPATHIC THROMBOCYTOPENIC PURPURA
     Dosage: 750 A?G, QWK
     Route: 058
     Dates: start: 20101217

REACTIONS (6)
  - RASH [None]
  - INJECTION SITE REACTION [None]
  - COSTOCHONDRITIS [None]
  - INJECTION SITE RASH [None]
  - INJECTION SITE ERYTHEMA [None]
  - SKIN SENSITISATION [None]
